FAERS Safety Report 7342550-4 (Version None)
Quarter: 2011Q1

REPORT INFORMATION
  Report Type: 
  Country: None (occurrence: None)
  Receive Date: 20110310
  Receipt Date: 20110310
  Transmission Date: 20110831
  Serious: Yes (Other)
  Sender: FDA-Public Use
  Company Number: PHHO2009JP03134

PATIENT
  Sex: Male
  Weight: 51 kg

DRUGS (9)
  1. TOLEDOMIN [Concomitant]
     Indication: DEPRESSION
     Dosage: UNK
  2. OXAROL [Concomitant]
     Indication: PSORIASIS
     Dosage: UNK
  3. FTY [Suspect]
     Dosage: 1.25 MG, UNK
     Route: 048
     Dates: start: 20090126, end: 20090320
  4. TAURINE [Concomitant]
  5. FTY [Suspect]
     Dosage: NO TREATMENT
     Dates: end: 20090125
  6. FTY [Suspect]
     Dosage: 1.25 MG, UNK
     Route: 048
     Dates: start: 20080818, end: 20081117
  7. TOPSYM [Concomitant]
     Indication: PSORIASIS
     Dosage: UNK
  8. HALCION [Concomitant]
  9. MEILAX [Concomitant]

REACTIONS (5)
  - VARICELLA VIRUS TEST POSITIVE [None]
  - HEPATIC FUNCTION ABNORMAL [None]
  - MEASLES ANTIBODY POSITIVE [None]
  - HEART RATE DECREASED [None]
  - ALANINE AMINOTRANSFERASE INCREASED [None]
